FAERS Safety Report 4806496-5 (Version None)
Quarter: 2005Q4

REPORT INFORMATION
  Report Type: 
  Country: None (occurrence: None)
  Receive Date: 20051019
  Receipt Date: 20051003
  Transmission Date: 20060501
  Serious: Yes (Hospitalization)
  Sender: FDA-Public Use
  Company Number: US_0510122720

PATIENT
  Age: 1 Day
  Sex: Male
  Weight: 2 kg

DRUGS (7)
  1. STRATTERA [Suspect]
     Route: 064
     Dates: start: 20040901
  2. LEXAPRO [Concomitant]
  3. CLARITIN [Concomitant]
  4. CELEXA [Concomitant]
  5. ALLEGRA [Concomitant]
  6. SINGULAIR [Concomitant]
  7. PRENATAL VITAMINS [Concomitant]

REACTIONS (3)
  - DRUG EXPOSURE DURING PREGNANCY [None]
  - IMMATURE RESPIRATORY SYSTEM [None]
  - PREMATURE BABY [None]
